FAERS Safety Report 26064921 (Version 1)
Quarter: 2025Q4

REPORT INFORMATION
  Report Type: Spontaneous
  Country: CN (occurrence: CN)
  Receive Date: 20251119
  Receipt Date: 20251119
  Transmission Date: 20260118
  Serious: Yes (Hospitalization)
  Sender: PFIZER
  Company Number: CN-PFIZER INC-PV202500134556

PATIENT
  Age: 77 Year
  Sex: Male
  Weight: 67.5 kg

DRUGS (1)
  1. LINEZOLID [Suspect]
     Active Substance: LINEZOLID
     Indication: Infection
     Dosage: 0.6 G, 2X/DAY
     Route: 041
     Dates: start: 20251031, end: 20251103

REACTIONS (2)
  - Platelet count decreased [Recovering/Resolving]
  - Drug level increased [Recovering/Resolving]

NARRATIVE: CASE EVENT DATE: 20251103
